FAERS Safety Report 24136620 (Version 3)
Quarter: 2024Q3

REPORT INFORMATION
  Report Type: Spontaneous
  Country: CA (occurrence: CA)
  Receive Date: 20240725
  Receipt Date: 20240806
  Transmission Date: 20241017
  Serious: Yes (Hospitalization, Other)
  Sender: Haleon PLC
  Company Number: CA-HALEON-2188676

PATIENT
  Sex: Female

DRUGS (107)
  1. CETIRIZINE [Suspect]
     Active Substance: CETIRIZINE HYDROCHLORIDE
     Indication: Rheumatoid arthritis
     Route: 042
  2. CETIRIZINE [Suspect]
     Active Substance: CETIRIZINE HYDROCHLORIDE
     Indication: Off label use
  3. DICLOFENAC SODIUM [Suspect]
     Active Substance: DICLOFENAC\DICLOFENAC SODIUM
     Indication: Product used for unknown indication
     Route: 065
  4. RISEDRONATE SODIUM [Suspect]
     Active Substance: RISEDRONATE SODIUM
     Indication: Product used for unknown indication
     Route: 065
  5. RISEDRONATE SODIUM [Suspect]
     Active Substance: RISEDRONATE SODIUM
     Route: 065
  6. ALENDRONATE SODIUM [Suspect]
     Active Substance: ALENDRONATE SODIUM
     Indication: Rheumatoid arthritis
     Route: 065
  7. CELECOXIB [Suspect]
     Active Substance: CELECOXIB
     Indication: Rheumatoid arthritis
     Route: 048
  8. RITUXIMAB [Suspect]
     Active Substance: RITUXIMAB
     Indication: Rheumatoid arthritis
     Route: 065
  9. RITUXIMAB [Suspect]
     Active Substance: RITUXIMAB
     Route: 065
  10. RITUXIMAB [Suspect]
     Active Substance: RITUXIMAB
     Route: 042
  11. METHOTREXATE [Suspect]
     Active Substance: METHOTREXATE
     Indication: Rheumatoid arthritis
     Route: 065
  12. METHOTREXATE [Suspect]
     Active Substance: METHOTREXATE
     Route: 065
  13. METHOTREXATE [Suspect]
     Active Substance: METHOTREXATE
     Route: 048
  14. METHOTREXATE [Suspect]
     Active Substance: METHOTREXATE
     Route: 048
  15. METHOTREXATE [Suspect]
     Active Substance: METHOTREXATE
     Route: 058
  16. METHOTREXATE [Suspect]
     Active Substance: METHOTREXATE
     Route: 058
  17. METHOTREXATE [Suspect]
     Active Substance: METHOTREXATE
     Dosage: UNK (MG)
     Route: 058
  18. COSENTYX [Suspect]
     Active Substance: SECUKINUMAB
     Indication: Psoriatic arthropathy
     Route: 065
  19. ACTEMRA [Suspect]
     Active Substance: TOCILIZUMAB
     Indication: Rheumatoid arthritis
     Route: 065
  20. ACTEMRA [Suspect]
     Active Substance: TOCILIZUMAB
     Route: 065
  21. ACTEMRA [Suspect]
     Active Substance: TOCILIZUMAB
     Route: 065
  22. ACTEMRA [Suspect]
     Active Substance: TOCILIZUMAB
     Indication: Rheumatoid arthritis
     Route: 065
  23. ANAKINRA [Suspect]
     Active Substance: ANAKINRA
     Indication: Rheumatoid arthritis
     Route: 065
  24. ANAKINRA [Suspect]
     Active Substance: ANAKINRA
     Route: 065
  25. ETANERCEPT [Suspect]
     Active Substance: ETANERCEPT
     Indication: Rheumatoid arthritis
     Route: 058
  26. FOLIC ACID [Suspect]
     Active Substance: FOLIC ACID
     Indication: Rheumatoid arthritis
     Route: 065
  27. FOLIC ACID [Suspect]
     Active Substance: FOLIC ACID
     Route: 065
  28. HUMIRA [Suspect]
     Active Substance: ADALIMUMAB
     Indication: Rheumatoid arthritis
     Route: 058
  29. HYDROXYCHLOROQUINE [Suspect]
     Active Substance: HYDROXYCHLOROQUINE
     Indication: Rheumatoid arthritis
     Route: 048
  30. HYDROXYCHLOROQUINE [Suspect]
     Active Substance: HYDROXYCHLOROQUINE
     Route: 048
  31. HYDROXYCHLOROQUINE [Suspect]
     Active Substance: HYDROXYCHLOROQUINE
     Dosage: DAILY DOSE: 1600 MG, QD, 400 MG, QID
     Route: 048
  32. HYDROXYCHLOROQUINE [Suspect]
     Active Substance: HYDROXYCHLOROQUINE
     Route: 048
  33. HUMAN IMMUNOGLOBULIN G [Suspect]
     Active Substance: HUMAN IMMUNOGLOBULIN G
     Indication: Product used for unknown indication
     Route: 065
  34. LEVOCETIRIZINE HYDROCHLORIDE [Suspect]
     Active Substance: LEVOCETIRIZINE HYDROCHLORIDE
     Indication: Product used for unknown indication
     Route: 065
  35. NAPROXEN SODIUM [Suspect]
     Active Substance: NAPROXEN\NAPROXEN SODIUM
     Indication: Rheumatoid arthritis
     Route: 065
  36. NAPROXEN SODIUM [Suspect]
     Active Substance: NAPROXEN\NAPROXEN SODIUM
     Route: 065
  37. NAPROXEN SODIUM [Suspect]
     Active Substance: NAPROXEN\NAPROXEN SODIUM
     Dosage: DAILY DOSE: 100 MG, QD, 500 MG, BID
     Route: 065
  38. NAPROXEN SODIUM [Suspect]
     Active Substance: NAPROXEN\NAPROXEN SODIUM
     Route: 065
  39. ORENCIA [Suspect]
     Active Substance: ABATACEPT
     Indication: Rheumatoid arthritis
     Dosage: DOSE: 150 UNIT: UNKNOWN
     Route: 058
  40. ORENCIA [Suspect]
     Active Substance: ABATACEPT
     Route: 065
  41. ORENCIA [Suspect]
     Active Substance: ABATACEPT
     Route: 065
  42. ORENCIA [Suspect]
     Active Substance: ABATACEPT
     Route: 065
  43. ORENCIA [Suspect]
     Active Substance: ABATACEPT
     Route: 058
  44. PHTHALYLSULFATHIAZOLE [Suspect]
     Active Substance: PHTHALYLSULFATHIAZOLE
     Indication: Rheumatoid arthritis
     Route: 065
  45. PREDNISONE [Suspect]
     Active Substance: PREDNISONE
     Indication: Rheumatoid arthritis
     Route: 042
  46. PREDNISONE [Suspect]
     Active Substance: PREDNISONE
     Route: 065
  47. PSEUDOEPHEDRINE [Suspect]
     Active Substance: PSEUDOEPHEDRINE
     Indication: Product used for unknown indication
     Route: 065
  48. RAMIPRIL [Suspect]
     Active Substance: RAMIPRIL
     Indication: Product used for unknown indication
     Route: 065
  49. REMICADE [Suspect]
     Active Substance: INFLIXIMAB
     Indication: Rheumatoid arthritis
     Route: 065
  50. REMICADE [Suspect]
     Active Substance: INFLIXIMAB
     Route: 065
  51. REMICADE [Suspect]
     Active Substance: INFLIXIMAB
     Route: 042
  52. REMICADE [Suspect]
     Active Substance: INFLIXIMAB
     Route: 042
  53. REMICADE [Suspect]
     Active Substance: INFLIXIMAB
     Route: 065
  54. SIMPONI [Suspect]
     Active Substance: GOLIMUMAB
     Indication: Rheumatoid arthritis
     Route: 058
  55. SIMPONI [Suspect]
     Active Substance: GOLIMUMAB
     Route: 058
  56. SIMPONI [Suspect]
     Active Substance: GOLIMUMAB
     Indication: Rheumatoid arthritis
     Route: 065
  57. SULFASALAZINE [Suspect]
     Active Substance: SULFASALAZINE
     Indication: Rheumatoid arthritis
     Route: 065
  58. SULFASALAZINE [Suspect]
     Active Substance: SULFASALAZINE
     Route: 065
  59. TOCILIZUMAB [Suspect]
     Active Substance: TOCILIZUMAB
     Indication: Rheumatoid arthritis
     Route: 065
  60. TOCILIZUMAB [Suspect]
     Active Substance: TOCILIZUMAB
     Route: 065
  61. CETIRIZINE [Suspect]
     Active Substance: CETIRIZINE HYDROCHLORIDE
     Indication: Rheumatoid arthritis
     Route: 042
  62. CETIRIZINE [Suspect]
     Active Substance: CETIRIZINE HYDROCHLORIDE
     Indication: Off label use
  63. ERELZI [Suspect]
     Active Substance: ETANERCEPT-SZZS
     Indication: Rheumatoid arthritis
     Route: 065
  64. ERELZI [Suspect]
     Active Substance: ETANERCEPT-SZZS
     Route: 065
  65. ERELZI [Suspect]
     Active Substance: ETANERCEPT-SZZS
     Route: 065
  66. ERELZI [Suspect]
     Active Substance: ETANERCEPT-SZZS
     Route: 065
  67. LEFLUNOMIDE [Suspect]
     Active Substance: LEFLUNOMIDE
     Indication: Rheumatoid arthritis
     Route: 065
  68. LEFLUNOMIDE [Suspect]
     Active Substance: LEFLUNOMIDE
     Route: 065
  69. LEFLUNOMIDE [Suspect]
     Active Substance: LEFLUNOMIDE
     Route: 065
  70. LEFLUNOMIDE [Suspect]
     Active Substance: LEFLUNOMIDE
     Dosage: DAILY DOSE: 10 MG, QD, 5 MG,2 EVERY 1 DAYS
     Route: 065
  71. LEFLUNOMIDE [Suspect]
     Active Substance: LEFLUNOMIDE
     Route: 048
  72. LEFLUNOMIDE [Suspect]
     Active Substance: LEFLUNOMIDE
     Dosage: DAILY DOSE: 6 MG, QD, 3 MG,2 EVERY 1 DAYS
     Route: 065
  73. LEFLUNOMIDE [Suspect]
     Active Substance: LEFLUNOMIDE
     Dosage: DAILY DOSE: 10 MG, QD, 5 MG,2 EVERY 1 DAYS
     Route: 048
  74. LEFLUNOMIDE [Suspect]
     Active Substance: LEFLUNOMIDE
     Indication: Rheumatoid arthritis
     Route: 065
  75. PREDNISONE [Suspect]
     Active Substance: PREDNISONE
     Indication: Rheumatoid arthritis
     Route: 065
  76. PREDNISONE [Suspect]
     Active Substance: PREDNISONE
     Route: 065
  77. PREDNISONE [Suspect]
     Active Substance: PREDNISONE
     Route: 048
  78. PREDNISONE [Suspect]
     Active Substance: PREDNISONE
     Route: 065
  79. PREDNISONE [Suspect]
     Active Substance: PREDNISONE
     Route: 048
  80. PREDNISONE [Suspect]
     Active Substance: PREDNISONE
     Dosage: 10 MG, QD (5 MG, BID)
     Route: 065
  81. PREDNISONE [Suspect]
     Active Substance: PREDNISONE
     Dosage: 10 MG, QD (5 MG, BID)
     Route: 048
  82. PREDNISONE [Suspect]
     Active Substance: PREDNISONE
     Dosage: 6 MG, QD (3 MG BID)
     Route: 065
  83. ARAVA [Suspect]
     Active Substance: LEFLUNOMIDE
     Indication: Rheumatoid arthritis
     Route: 065
  84. ARAVA [Suspect]
     Active Substance: LEFLUNOMIDE
     Route: 065
  85. CIMZIA [Suspect]
     Active Substance: CERTOLIZUMAB PEGOL
     Indication: Rheumatoid arthritis
     Route: 058
  86. CIMZIA [Suspect]
     Active Substance: CERTOLIZUMAB PEGOL
     Route: 058
  87. CORTISONE ACETATE [Suspect]
     Active Substance: CORTISONE ACETATE
     Indication: Rheumatoid arthritis
     Route: 061
  88. DESOXIMETASONE [Suspect]
     Active Substance: DESOXIMETASONE
     Indication: Rheumatoid arthritis
     Route: 048
  89. DESOXIMETASONE [Suspect]
     Active Substance: DESOXIMETASONE
     Route: 048
  90. ENBREL [Suspect]
     Active Substance: BENZYL ALCOHOL\ETANERCEPT
     Indication: Rheumatoid arthritis
     Route: 048
  91. ENBREL [Suspect]
     Active Substance: BENZYL ALCOHOL\ETANERCEPT
     Route: 065
  92. ENBREL [Suspect]
     Active Substance: BENZYL ALCOHOL\ETANERCEPT
     Route: 065
  93. TOCILIZUMAB [Suspect]
     Active Substance: TOCILIZUMAB
     Indication: Rheumatoid arthritis
     Route: 065
  94. TRIAMCINOLONE [Suspect]
     Active Substance: TRIAMCINOLONE
     Indication: Product used for unknown indication
     Route: 065
  95. TRIAMCINOLONE ACETONIDE [Suspect]
     Active Substance: TRIAMCINOLONE ACETONIDE
     Indication: Product used for unknown indication
     Dosage: DOSAGE FORM: SUSPENSION
     Route: 014
  96. XELJANZ [Suspect]
     Active Substance: TOFACITINIB CITRATE
     Indication: Rheumatoid arthritis
  97. XELJANZ [Suspect]
     Active Substance: TOFACITINIB CITRATE
     Route: 048
  98. XELJANZ [Suspect]
     Active Substance: TOFACITINIB CITRATE
     Dosage: DAILY DOSE; 10 MG, QD, 5 MG, BID
     Route: 048
  99. PANTOPRAZOLE [Concomitant]
     Active Substance: PANTOPRAZOLE
     Indication: Product used for unknown indication
  100. QUETIAPINE [Concomitant]
     Active Substance: QUETIAPINE
     Indication: Product used for unknown indication
  101. WELLBUTRIN [Concomitant]
     Active Substance: BUPROPION HYDROCHLORIDE
     Indication: Product used for unknown indication
  102. COSENTYX [Concomitant]
     Active Substance: SECUKINUMAB
     Indication: Product used for unknown indication
  103. CALCIUM GLUCONATE [Concomitant]
     Active Substance: CALCIUM GLUCONATE
     Indication: Product used for unknown indication
  104. RAMIPRIL [Concomitant]
     Active Substance: RAMIPRIL
     Indication: Product used for unknown indication
  105. ACTEMRA [Suspect]
     Active Substance: TOCILIZUMAB
     Indication: Rheumatoid arthritis
     Route: 065
  106. ACTEMRA [Suspect]
     Active Substance: TOCILIZUMAB
     Route: 065
  107. ACTEMRA [Suspect]
     Active Substance: TOCILIZUMAB
     Route: 065

REACTIONS (15)
  - Adrenal insufficiency [Not Recovered/Not Resolved]
  - Anti-cyclic citrullinated peptide antibody positive [Not Recovered/Not Resolved]
  - Drug hypersensitivity [Not Recovered/Not Resolved]
  - Joint destruction [Not Recovered/Not Resolved]
  - Hypokalaemia [Not Recovered/Not Resolved]
  - Immunodeficiency [Not Recovered/Not Resolved]
  - Infection [Not Recovered/Not Resolved]
  - Drug tolerance [Not Recovered/Not Resolved]
  - Polyarthritis [Not Recovered/Not Resolved]
  - Loss of consciousness [Not Recovered/Not Resolved]
  - Psoriasis [Not Recovered/Not Resolved]
  - Pulmonary fibrosis [Not Recovered/Not Resolved]
  - Rheumatoid factor positive [Not Recovered/Not Resolved]
  - Therapeutic product effect decreased [Not Recovered/Not Resolved]
  - Therapy non-responder [Not Recovered/Not Resolved]
